FAERS Safety Report 5089328-2 (Version None)
Quarter: 2006Q3

REPORT INFORMATION
  Report Type: 
  Country: None (occurrence: None)
  Receive Date: 20060822
  Receipt Date: 20060807
  Transmission Date: 20061208
  Serious: Yes (Hospitalization)
  Sender: FDA-Public Use
  Company Number: DEU-2006-0002411

PATIENT
  Sex: Male

DRUGS (1)
  1. OXYGESIC (OXYCODONE HYDROCHLORIDE)PROLONGED-RELEASE TABLET [Suspect]
     Indication: DRUG USE FOR UNKNOWN INDICATION
     Dosage: SEE TEXT, ORAL
     Route: 048

REACTIONS (5)
  - DEHYDRATION [None]
  - OVERDOSE [None]
  - RENAL FAILURE ACUTE [None]
  - RESPIRATORY DEPRESSION [None]
  - TREATMENT NONCOMPLIANCE [None]
